FAERS Safety Report 24063348 (Version 1)
Quarter: 2024Q3

REPORT INFORMATION
  Report Type: Spontaneous
  Country: US (occurrence: US)
  Receive Date: 20240709
  Receipt Date: 20240709
  Transmission Date: 20241016
  Serious: No
  Sender: SANOFI AVENTIS
  Company Number: US-SA-SAC20240704000248

PATIENT
  Age: 21 Year
  Sex: Female

DRUGS (2)
  1. DUPIXENT [Suspect]
     Active Substance: DUPILUMAB
     Indication: Asthma
     Dosage: ONLY HAD 1 SYRINGE ON DAY 1. RECOMMENDED DOSE IS 2 SYRINGES ON DAY 1. THEN 1 SYRINGE EVERY 14 DAYS T
     Route: 058
     Dates: start: 202404
  2. DUPIXENT [Suspect]
     Active Substance: DUPILUMAB
     Dosage: THEN 1 SYRINGE EVERY 14 DAYS THEREAFTER
     Route: 058

REACTIONS (3)
  - Dyspnoea [Unknown]
  - Nausea [Not Recovered/Not Resolved]
  - Incorrect dose administered [Unknown]
